FAERS Safety Report 7504744-4 (Version None)
Quarter: 2011Q2

REPORT INFORMATION
  Report Type: 
  Country: None (occurrence: None)
  Receive Date: 20110525
  Receipt Date: 20101119
  Transmission Date: 20111010
  Serious: Yes (Hospitalization)
  Sender: FDA-Public Use
  Company Number: US-AMGEN-USASP2010005745

PATIENT
  Sex: Female

DRUGS (2)
  1. FERROUS SULFATE TAB [Concomitant]
  2. ARANESP [Suspect]
     Indication: RENAL FAILURE CHRONIC
     Dates: start: 20100501, end: 20100601

REACTIONS (4)
  - CHEST PAIN [None]
  - MEMORY IMPAIRMENT [None]
  - DYSPNOEA [None]
  - BLOOD PRESSURE INCREASED [None]
